FAERS Safety Report 9924677 (Version 1)
Quarter: 2014Q1

REPORT INFORMATION
  Report Type: Spontaneous
  Country: US (occurrence: US)
  Receive Date: 20140226
  Receipt Date: 20140226
  Transmission Date: 20141002
  Serious: Yes (Other)
  Sender: FDA-Public Use
  Company Number: US-JNJFOC-20140212433

PATIENT
  Age: 3 Year
  Sex: Male

DRUGS (5)
  1. DOXORUBICIN HYDROCHLORIDE [Suspect]
     Indication: NEUROBLASTOMA
     Dosage: CUMULATIVE DOSAGE WAS 300 MG/M2
     Route: 042
  2. CYCLOPHOSPHAMIDE [Suspect]
     Indication: NEUROBLASTOMA
     Dosage: CUMULATIVE DOSAGE WAS 16,800 MG/M2
     Route: 065
  3. CISPLATIN [Suspect]
     Indication: NEUROBLASTOMA
     Dosage: CUMULATIVE DOSAGE WAS 600 MG/M2
     Route: 065
  4. ETOPOSIDE [Suspect]
     Indication: NEUROBLASTOMA
     Dosage: CUMULATIVE DOSAGE WAS 1800 MG/M2
     Route: 065
  5. VINCRISTINE [Suspect]
     Indication: NEUROBLASTOMA
     Route: 065

REACTIONS (3)
  - Thrombocytopenia [Unknown]
  - Myelodysplastic syndrome [Recovered/Resolved]
  - Off label use [Unknown]
